FAERS Safety Report 7557133-0 (Version None)
Quarter: 2011Q2

REPORT INFORMATION
  Report Type: 
  Country: None (occurrence: None)
  Receive Date: 20110620
  Receipt Date: 20110616
  Transmission Date: 20111010
  Serious: Yes (Hospitalization, Other)
  Sender: FDA-Public Use
  Company Number: JP-PFIZER INC-2011120053

PATIENT
  Age: 10 Year
  Sex: Female

DRUGS (3)
  1. GASMOTIN [Suspect]
     Dosage: UNK
     Route: 048
  2. ZOLOFT [Suspect]
     Dosage: UNK
     Route: 048
  3. DEPAS [Suspect]
     Dosage: UNK
     Route: 048

REACTIONS (2)
  - OVERDOSE [None]
  - ALTERED STATE OF CONSCIOUSNESS [None]
